FAERS Safety Report 15290015 (Version 3)
Quarter: 2018Q3

REPORT INFORMATION
  Report Type: Spontaneous
  Country: BE (occurrence: BE)
  Receive Date: 20180817
  Receipt Date: 20180914
  Transmission Date: 20181010
  Serious: Yes (Other)
  Sender: FDA-Public Use
  Company Number: BE-ELI_LILLY_AND_COMPANY-BE201808005356

PATIENT
  Age: 59 Year
  Sex: Female
  Weight: 50 kg

DRUGS (10)
  1. DEXAMETHASONE. [Concomitant]
     Active Substance: DEXAMETHASONE
     Indication: PRODUCT USED FOR UNKNOWN INDICATION
     Dosage: 4 MG, UNKNOWN
     Route: 048
     Dates: start: 20180603
  2. CISPLATIN TEVA [Concomitant]
     Active Substance: CISPLATIN
     Indication: LUNG ADENOCARCINOMA
     Dosage: 89 MG/M2, CYCLICAL
     Route: 042
     Dates: start: 20180604
  3. VITAMIN B12 [Concomitant]
     Active Substance: CYANOCOBALAMIN
     Indication: PROPHYLACTIC CHEMOTHERAPY
     Dosage: 1000 UG, UNKNOWN
     Route: 030
     Dates: start: 20180529
  4. CISPLATIN TEVA [Concomitant]
     Active Substance: CISPLATIN
     Dosage: 89 MG/M2, CYCLICAL
     Route: 042
     Dates: start: 20180716
  5. ALIMTA [Suspect]
     Active Substance: PEMETREXED DISODIUM
     Indication: LUNG ADENOCARCINOMA
     Dosage: 722 MG/M2, CYCLICAL, EVERY 21 DAYS
     Route: 042
     Dates: start: 20180604
  6. ALIMTA [Suspect]
     Active Substance: PEMETREXED DISODIUM
     Dosage: 722 MG/M2, CYCLICAL, EVERY 21 DAYS
     Route: 042
     Dates: start: 20180625, end: 20180808
  7. AKYNZEO [Concomitant]
     Active Substance: NETUPITANT\PALONOSETRON HYDROCHLORIDE
     Indication: PRODUCT USED FOR UNKNOWN INDICATION
     Dosage: 300 MG, UNKNOWN
     Route: 065
  8. AKYNZEO [Concomitant]
     Active Substance: NETUPITANT\PALONOSETRON HYDROCHLORIDE
     Dosage: 0.5 MG, UNKNOWN
     Route: 065
  9. CISPLATIN TEVA [Concomitant]
     Active Substance: CISPLATIN
     Dosage: 89 MG/M2, CYCLICAL
     Route: 042
     Dates: start: 20180625
  10. FORTICINE [Concomitant]
     Active Substance: HERBALS\MINERALS\VITAMINS
     Indication: PROPHYLACTIC CHEMOTHERAPY
     Dosage: 400 NG, UNKNOWN
     Route: 048
     Dates: start: 20180529

REACTIONS (1)
  - Visual impairment [Recovered/Resolved]

NARRATIVE: CASE EVENT DATE: 201806
